FAERS Safety Report 6031812-9 (Version None)
Quarter: 2008Q4

REPORT INFORMATION
  Report Type: 
  Country: None (occurrence: None)
  Receive Date: 20081231
  Receipt Date: 20081014
  Transmission Date: 20090506
  Serious: Yes (Other)
  Sender: FDA-Public Use
  Company Number: 178670USA

PATIENT
  Age: 5 Year
  Sex: Male

DRUGS (1)
  1. LAMOTRIGINE [Suspect]
     Indication: EPILEPSY
     Dosage: 10 MG (5 MG, 2 IN 1 D) ,ORAL
     Route: 048
     Dates: start: 20080801

REACTIONS (9)
  - ABNORMAL BEHAVIOUR [None]
  - AGGRESSION [None]
  - AGITATION [None]
  - EPILEPSY [None]
  - FEELING ABNORMAL [None]
  - HYPERVENTILATION [None]
  - PANIC REACTION [None]
  - TREMOR [None]
  - VOMITING [None]
